FAERS Safety Report 6417194-9 (Version None)
Quarter: 2009Q4

REPORT INFORMATION
  Report Type: 
  Country: None (occurrence: None)
  Receive Date: 20091028
  Receipt Date: 20091020
  Transmission Date: 20100525
  Serious: Yes (Other)
  Sender: FDA-Public Use
  Company Number: ES-JNJFOC-20091006173

PATIENT
  Age: 6 Year
  Sex: Male

DRUGS (2)
  1. CONCERTA [Suspect]
     Indication: ATTENTION DEFICIT/HYPERACTIVITY DISORDER
     Route: 048
     Dates: start: 20090301, end: 20090401
  2. RUBIFEN [Concomitant]
     Indication: DRUG USE FOR UNKNOWN INDICATION
     Route: 065

REACTIONS (5)
  - ABNORMAL BEHAVIOUR [None]
  - DEPRESSION [None]
  - INAPPROPRIATE AFFECT [None]
  - INSOMNIA [None]
  - SUICIDAL IDEATION [None]
